FAERS Safety Report 7526347-8 (Version None)
Quarter: 2011Q2

REPORT INFORMATION
  Report Type: 
  Country: None (occurrence: None)
  Receive Date: 20110606
  Receipt Date: 20110601
  Transmission Date: 20111010
  Serious: No
  Sender: FDA-Public Use
  Company Number: US-PFIZER INC-2011108248

PATIENT
  Sex: Male

DRUGS (7)
  1. LYRICA [Suspect]
     Indication: DIABETIC NEUROPATHY
     Dosage: 50 UNK, 3X/DAY
     Route: 048
     Dates: start: 20110425, end: 20110517
  2. GABAPENTIN [Concomitant]
     Indication: DIABETIC NEUROPATHY
     Dosage: UNK
     Dates: start: 19990101
  3. ASPIRIN [Concomitant]
     Dosage: UNK
  4. LOSARTAN [Concomitant]
     Dosage: UNK
  5. METOPROLOL [Concomitant]
     Dosage: UNK
  6. LASIX [Concomitant]
     Dosage: UNK
  7. SIMVASTATIN [Concomitant]
     Dosage: UNK

REACTIONS (1)
  - SEDATION [None]
